FAERS Safety Report 4312997-9 (Version None)
Quarter: 2004Q1

REPORT INFORMATION
  Report Type: 
  Country: None (occurrence: None)
  Receive Date: 20040305
  Receipt Date: 20040305
  Transmission Date: 20041129
  Serious: Yes (Hospitalization)
  Sender: FDA-Public Use
  Company Number: None

PATIENT
  Age: 43 Year
  Sex: Male
  Weight: 83.6 kg

DRUGS (13)
  1. CLOZAPINE [Suspect]
     Indication: SCHIZOPHRENIA, PARANOID TYPE
     Dosage: 100 MG Q AM ORAL
     Route: 048
     Dates: start: 20031211, end: 20040202
  2. CLOZAPINE [Suspect]
     Indication: SCHIZOPHRENIA, PARANOID TYPE
     Dosage: 400 MG QHS ORAL
     Route: 048
     Dates: start: 20031205, end: 20040202
  3. ASPIRIN [Concomitant]
  4. FOLIC ACID [Concomitant]
  5. LACTULOSE [Concomitant]
  6. RISPERDAL [Concomitant]
  7. TRAZODONE HCL [Concomitant]
  8. APAP TAB [Concomitant]
  9. BISACODYL [Concomitant]
  10. IBUPROFEN [Concomitant]
  11. MAALOX [Concomitant]
  12. MOM [Concomitant]
  13. FLUVOXAMINE MALEATE [Concomitant]

REACTIONS (3)
  - COMA [None]
  - SALIVARY HYPERSECRETION [None]
  - SYNCOPE [None]
